FAERS Safety Report 8614041-1 (Version None)
Quarter: 2012Q2

REPORT INFORMATION
  Report Type: 
  Country: None (occurrence: None)
  Receive Date: 20120423
  Receipt Date: 20090615
  Transmission Date: 20120825
  Serious: Yes (Other)
  Sender: FDA-Public Use
  Company Number: PHEH2009US04565

PATIENT
  Age: 85 Year
  Sex: Female

DRUGS (4)
  1. PREDNISONE TAB [Concomitant]
  2. EXJADE [Suspect]
     Indication: IRON OVERLOAD
     Dosage: 1250 MG, QD, ORAL
     Route: 048
     Dates: start: 20090511, end: 20090511
  3. ALLOPURINOL [Concomitant]
  4. NITROFLURANTOIN (NITROFLURANTIN) [Concomitant]

REACTIONS (10)
  - VOMITING [None]
  - RASH [None]
  - SWELLING [None]
  - PRURITUS [None]
  - GENERALISED OEDEMA [None]
  - NAUSEA [None]
  - DYSPNOEA [None]
  - OEDEMA PERIPHERAL [None]
  - HYPERSENSITIVITY [None]
  - CHILLS [None]
